FAERS Safety Report 16805913 (Version 1)
Quarter: 2019Q4

REPORT INFORMATION
  Report Type: Spontaneous
  Country: US (occurrence: US)
  Receive Date: 20190913
  Receipt Date: 20190913
  Transmission Date: 20200122
  Serious: No
  Sender: FDA-Public Use
  Company Number: None

PATIENT
  Age: 49 Year
  Sex: Female
  Weight: 114.75 kg

DRUGS (1)
  1. GLEEVEC [Suspect]
     Active Substance: IMATINIB MESYLATE
     Indication: CHRONIC MYELOID LEUKAEMIA
     Route: 048
     Dates: start: 20190617

REACTIONS (7)
  - Vision blurred [None]
  - Eye pruritus [None]
  - Eye pain [None]
  - Eye irritation [None]
  - Ocular hyperaemia [None]
  - Optic nerve disorder [None]
  - Peripheral swelling [None]

NARRATIVE: CASE EVENT DATE: 20190913
